FAERS Safety Report 5805925-8 (Version None)
Quarter: 2008Q3

REPORT INFORMATION
  Report Type: 
  Country: None (occurrence: None)
  Receive Date: 20080710
  Receipt Date: 20080707
  Transmission Date: 20090109
  Serious: Yes (Other)
  Sender: FDA-Public Use
  Company Number: US-ASTRAZENECA-2007UW28985

PATIENT
  Age: 43 Year
  Sex: Female
  Weight: 100.9 kg

DRUGS (7)
  1. SEROQUEL [Suspect]
     Indication: SLEEP APNOEA SYNDROME
     Dosage: VARIOUS DOSES INCLUDING 300 MG
     Route: 048
     Dates: start: 20010101, end: 20070101
  2. TOPROL-XL [Concomitant]
     Dates: start: 20050101
  3. TOPROL-XL [Concomitant]
     Dates: start: 20060101
  4. TOPROL-XL [Concomitant]
     Dates: start: 20070101
  5. EFFEXOR [Concomitant]
     Dates: start: 20050101
  6. EFFEXOR [Concomitant]
     Dates: start: 20060101
  7. EFFEXOR [Concomitant]
     Dates: start: 20070101

REACTIONS (3)
  - DIABETES MELLITUS [None]
  - LUNG DISORDER [None]
  - SPINAL OPERATION [None]
